FAERS Safety Report 25683045 (Version 1)
Quarter: 2025Q3

REPORT INFORMATION
  Report Type: Spontaneous
  Country: JP (occurrence: JP)
  Receive Date: 20250814
  Receipt Date: 20250814
  Transmission Date: 20251020
  Serious: Yes (Hospitalization, Other)
  Sender: MERCK SHARP & DOHME LLC
  Company Number: JP-009507513-2317869

PATIENT
  Age: 8 Decade
  Sex: Female

DRUGS (3)
  1. KEYTRUDA [Suspect]
     Active Substance: PEMBROLIZUMAB
     Indication: Bile duct cancer stage I
     Route: 065
  2. GEMCITABINE [Suspect]
     Active Substance: GEMCITABINE
     Indication: Bile duct cancer stage I
  3. CISPLATIN [Suspect]
     Active Substance: CISPLATIN
     Indication: Bile duct cancer stage I

REACTIONS (12)
  - Biliary obstruction [Unknown]
  - Glomerular filtration rate abnormal [Unknown]
  - Pain [Unknown]
  - Haematocrit abnormal [Unknown]
  - Lipase abnormal [Unknown]
  - Condition aggravated [Unknown]
  - Immune-mediated encephalitis [Unknown]
  - Red blood cell analysis abnormal [Unknown]
  - Antibiotic therapy [Unknown]
  - Hepatic function abnormal [Unknown]
  - Blood creatine phosphokinase abnormal [Unknown]
  - Haemoglobin abnormal [Unknown]
